FAERS Safety Report 7487368-7 (Version None)
Quarter: 2011Q2

REPORT INFORMATION
  Report Type: 
  Country: None (occurrence: None)
  Receive Date: 20110510
  Receipt Date: 20110425
  Transmission Date: 20111010
  Serious: Yes (Other)
  Sender: FDA-Public Use
  Company Number: DSJ-2011-02239

PATIENT
  Age: 7 Decade
  Sex: Female

DRUGS (4)
  1. EZETIMIBE [Suspect]
     Indication: PRODUCT USED FOR UNKNOWN INDICATION
  2. AMLODIPINE BESYLATE AND OLMESARTAN MEDOXOMIL [Suspect]
     Indication: HYPERTENSION
     Dosage: 20/5 MG (1 IN 1 D), PER ORAL
     Route: 048
     Dates: start: 20080101, end: 20110418
  3. ROSUVASTATIN [Suspect]
     Indication: HYPERCHOLESTEROLAEMIA
     Dosage: PER ORAL
     Route: 048
     Dates: start: 20080101, end: 20080101
  4. FLUOXETINE [Concomitant]

REACTIONS (3)
  - CATARACT OPERATION [None]
  - PAIN IN EXTREMITY [None]
  - COUGH [None]
